FAERS Safety Report 18156501 (Version 3)
Quarter: 2020Q4

REPORT INFORMATION
  Report Type: Spontaneous
  Country: US (occurrence: US)
  Receive Date: 20200817
  Receipt Date: 20201020
  Transmission Date: 20210113
  Serious: No
  Sender: FDA-Public Use
  Company Number: US-PFIZER INC-2020315673

PATIENT
  Age: 57 Year
  Sex: Female

DRUGS (1)
  1. XELJANZ [Suspect]
     Active Substance: TOFACITINIB CITRATE
     Indication: RHEUMATOID ARTHRITIS
     Dosage: 5 MG, 2X/DAY (1 TABLET BY MOUTH TWICE A DAY)
     Route: 048
     Dates: start: 202007

REACTIONS (6)
  - Headache [Unknown]
  - Fluid retention [Unknown]
  - Migraine [Unknown]
  - Rhinorrhoea [Unknown]
  - Peripheral swelling [Unknown]
  - Condition aggravated [Unknown]
